FAERS Safety Report 15260309 (Version 2)
Quarter: 2018Q3

REPORT INFORMATION
  Report Type: Spontaneous
  Country: US (occurrence: US)
  Receive Date: 20180809
  Receipt Date: 20180816
  Transmission Date: 20181010
  Serious: Yes (Other)
  Sender: FDA-Public Use
  Company Number: US-JNJFOC-20180729425

PATIENT
  Sex: Female
  Weight: 54.43 kg

DRUGS (1)
  1. REMICADE [Suspect]
     Active Substance: INFLIXIMAB
     Indication: CROHN^S DISEASE
     Dosage: ONE TIME ONLY
     Route: 042

REACTIONS (5)
  - Viral infection [Unknown]
  - Respiratory tract infection [Unknown]
  - White blood cell count increased [Unknown]
  - Drug ineffective [Unknown]
  - Crohn^s disease [Unknown]
